FAERS Safety Report 4984458-5 (Version None)
Quarter: 2006Q2

REPORT INFORMATION
  Report Type: 
  Country: None (occurrence: None)
  Receive Date: 20060427
  Receipt Date: 20060406
  Transmission Date: 20061013
  Serious: Yes (Other)
  Sender: FDA-Public Use
  Company Number: JP-JPN-A200601150

PATIENT
  Age: 77 Year
  Sex: Female

DRUGS (4)
  1. PAXIL [Suspect]
     Indication: DEPRESSION
     Dosage: 20MG PER DAY
     Route: 048
     Dates: start: 20051202, end: 20060316
  2. GASMOTIN [Concomitant]
     Route: 048
  3. ALPRAZOLAM [Concomitant]
     Route: 048
  4. MYSLEE [Concomitant]
     Route: 048

REACTIONS (4)
  - ASPARTATE AMINOTRANSFERASE INCREASED [None]
  - BLOOD BILIRUBIN INCREASED [None]
  - DIZZINESS [None]
  - FALL [None]
